FAERS Safety Report 14953031 (Version 1)
Quarter: 2018Q2

REPORT INFORMATION
  Report Type: Report from Study
  Country: None (occurrence: DE)
  Receive Date: 20180530
  Receipt Date: 20180530
  Transmission Date: 20180711
  Serious: Yes (Life-Threatening, Hospitalization, Other)
  Sender: FDA-Public Use
  Company Number: DE-KADMON PHARMACEUTICALS, LLC-KAD-201803-01255

PATIENT
  Age: 38 Year
  Sex: Female
  Weight: 65 kg

DRUGS (34)
  1. AZITHROMYCIN ANHYDROUS. [Concomitant]
     Active Substance: AZITHROMYCIN ANHYDROUS
     Dates: start: 20130712, end: 20130714
  2. LOTRISONE [Concomitant]
     Active Substance: BETAMETHASONE DIPROPIONATE\CLOTRIMAZOLE
     Dates: start: 20130610
  3. AMPHO MORONAL [Concomitant]
     Active Substance: AMPHOTERICIN B
     Dates: start: 20130610
  4. RIBAVIRIN. [Suspect]
     Active Substance: RIBAVIRIN
     Indication: HEPATITIS C
     Route: 048
     Dates: start: 20130321, end: 20140317
  5. PEGINTERFERON ALFA-2A. [Suspect]
     Active Substance: PEGINTERFERON ALFA-2A
     Route: 058
     Dates: start: 20131118, end: 20140317
  6. AZITHROMYCIN ANHYDROUS. [Concomitant]
     Active Substance: AZITHROMYCIN ANHYDROUS
     Dates: start: 20140408, end: 20140410
  7. METAMIZOL [Concomitant]
     Active Substance: METAMIZOLE SODIUM
     Dates: start: 20130627
  8. L THYROXIN BETA [Concomitant]
     Dates: start: 20130722, end: 20131202
  9. AZITHROMYCIN ANHYDROUS. [Concomitant]
     Active Substance: AZITHROMYCIN ANHYDROUS
     Dates: start: 20130627, end: 20130629
  10. VIVINOX [Concomitant]
     Dates: start: 20130909
  11. BETAGALEN [Concomitant]
     Dates: start: 20130426
  12. RISPERIDON [Concomitant]
     Active Substance: RISPERIDONE
     Dates: start: 20140401, end: 20140408
  13. MIRTAZAPIN [Concomitant]
     Active Substance: MIRTAZAPINE
     Dates: start: 20130402
  14. OMEPRAZOL [Concomitant]
     Active Substance: OMEPRAZOLE
     Dates: start: 20130503
  15. LOPERAMID [Concomitant]
     Active Substance: LOPERAMIDE
     Dates: start: 20130603, end: 20130603
  16. AMPHO MORONAL [Concomitant]
     Active Substance: AMPHOTERICIN B
     Dates: start: 20131230
  17. IBUPROFEN. [Concomitant]
     Active Substance: IBUPROFEN
  18. FUCICORT [Concomitant]
     Active Substance: BETAMETHASONE VALERATE\FUSIDIC ACID
     Dates: start: 20130715
  19. VITAMIN D3 [Concomitant]
     Active Substance: CHOLECALCIFEROL
     Route: 048
     Dates: start: 20130320, end: 20130415
  20. TETRACAINE HYDROCHLORIDE. [Concomitant]
     Active Substance: TETRACAINE HYDROCHLORIDE
     Dates: start: 20130627
  21. CEFUROXIM [Concomitant]
     Active Substance: CEFUROXIME
     Dates: start: 20130603, end: 20130609
  22. L THYROXIN BETA [Concomitant]
     Dates: start: 20130627
  23. AZITHROMYCIN ANHYDROUS. [Concomitant]
     Active Substance: AZITHROMYCIN ANHYDROUS
     Dates: start: 20130503, end: 20130505
  24. PEGINTERFERON ALFA-2A. [Suspect]
     Active Substance: PEGINTERFERON ALFA-2A
     Indication: HEPATITIS C
     Route: 058
     Dates: start: 20130415, end: 20131110
  25. PEGINTERFERON ALFA-2A. [Suspect]
     Active Substance: PEGINTERFERON ALFA-2A
     Route: 058
     Dates: start: 20131111, end: 20131117
  26. AZITHROMYCIN ANHYDROUS. [Concomitant]
     Active Substance: AZITHROMYCIN ANHYDROUS
     Dates: start: 20141030, end: 20141104
  27. L THYROXIN BETA [Concomitant]
     Dates: start: 20131202
  28. UNACID [Concomitant]
     Dates: start: 20140324, end: 20140328
  29. BUDESONIDE EASYHALER [Concomitant]
     Active Substance: BUDESONIDE
     Dates: start: 20140331
  30. DEXAMYTREX [Concomitant]
     Active Substance: DEXAMETHASONE SODIUM PHOSPHATE\GENTAMICIN SULFATE
     Dates: start: 20130712
  31. NEO-ANGIN [Concomitant]
     Dates: start: 20131118
  32. L THYROXIN BETA [Concomitant]
     Dates: start: 20131203
  33. L THYROXIN BETA [Concomitant]
     Dates: start: 20130617
  34. AZITHROMYCIN ANHYDROUS. [Concomitant]
     Active Substance: AZITHROMYCIN ANHYDROUS
     Dates: start: 20130527, end: 20130529

REACTIONS (18)
  - Bulimia nervosa [Recovered/Resolved]
  - Weight decreased [Not Recovered/Not Resolved]
  - Circulatory collapse [Unknown]
  - Oropharyngeal pain [Recovered/Resolved]
  - Alanine aminotransferase increased [Not Recovered/Not Resolved]
  - Hypersensitivity [Unknown]
  - Hypotension [Unknown]
  - Bulimia nervosa [Not Recovered/Not Resolved]
  - Dyspepsia [Recovered/Resolved]
  - Nausea [Unknown]
  - Syncope [Unknown]
  - Muscle spasms [Recovered/Resolved]
  - Alcohol abuse [Recovered/Resolved]
  - Wound infection [Recovered/Resolved]
  - Muscle spasms [Unknown]
  - Bradycardia [Not Recovered/Not Resolved]
  - Drug dependence [Not Recovered/Not Resolved]
  - Abdominal discomfort [Recovered/Resolved]

NARRATIVE: CASE EVENT DATE: 20130415
